FAERS Safety Report 21334531 (Version 1)
Quarter: 2022Q3

REPORT INFORMATION
  Report Type: Spontaneous
  Country: MX (occurrence: MX)
  Receive Date: 20220914
  Receipt Date: 20220914
  Transmission Date: 20221027
  Serious: Yes (Hospitalization, Congenital Anomaly, Other)
  Sender: FDA-Public Use
  Company Number: MX-GLAXOSMITHKLINE-MX2022AMR129307

PATIENT

DRUGS (6)
  1. ALBUTEROL [Suspect]
     Active Substance: ALBUTEROL
     Indication: Product used for unknown indication
     Dosage: 2 MM EVERY EIGHT HOURS
     Route: 064
  2. ASPIRIN [Suspect]
     Active Substance: ASPIRIN
     Indication: Product used for unknown indication
     Dosage: 100 MG
     Route: 064
  3. FOLIC ACID [Suspect]
     Active Substance: FOLIC ACID
     Indication: Product used for unknown indication
     Dosage: UNK
     Route: 064
  4. NIFEDIPINE [Suspect]
     Active Substance: NIFEDIPINE
     Indication: Uterine disorder
     Dosage: 10 MM EVERY EIGHT HOURS
     Route: 064
  5. METAPROTERENOL [Suspect]
     Active Substance: METAPROTERENOL
     Indication: Uterine disorder
     Dosage: UNK
     Route: 064
  6. MAGNESIUM SULFATE [Suspect]
     Active Substance: MAGNESIUM SULFATE
     Indication: Nervous system disorder prophylaxis
     Dosage: UNK
     Route: 064

REACTIONS (28)
  - Eagle Barrett syndrome [Unknown]
  - Nail aplasia [Unknown]
  - Respiratory distress [Unknown]
  - Renal disorder [Unknown]
  - Bladder obstruction [Unknown]
  - Gastroenteritis [Unknown]
  - Food intolerance [Unknown]
  - Dehydration [Unknown]
  - Abdominal distension [Unknown]
  - Abdominal mass [Unknown]
  - Hypotonia [Unknown]
  - Cryptorchism [Unknown]
  - Genital pain [Unknown]
  - Talipes [Unknown]
  - Anonychia [Unknown]
  - Gastrointestinal disorder [Unknown]
  - Inguinal mass [Unknown]
  - Scrotal mass [Unknown]
  - Renal tubular dysfunction [Unknown]
  - Renal impairment [Unknown]
  - Congenital pyelocaliectasis [Unknown]
  - Urinary retention [Unknown]
  - Hydronephrosis [Unknown]
  - Stasis dermatitis [Unknown]
  - Skin disorder [Unknown]
  - Bladder dilatation [Unknown]
  - Foetal exposure during pregnancy [Unknown]
  - Premature baby [Unknown]
